FAERS Safety Report 9437892 (Version 1)
Quarter: 2013Q3

REPORT INFORMATION
  Report Type: Spontaneous
  Country: US (occurrence: US)
  Receive Date: 20130802
  Receipt Date: 20130802
  Transmission Date: 20140515
  Serious: No
  Sender: FDA-Public Use
  Company Number: US-PFIZER INC-2013220825

PATIENT
  Age: 69 Year
  Sex: Male

DRUGS (4)
  1. SUTENT [Suspect]
     Indication: NEUROENDOCRINE TUMOUR
     Dosage: 37.5 MG, DAILY (CYCLIC)
     Dates: start: 201210
  2. SANDOSTATIN [Concomitant]
     Dosage: UNK
  3. PRILOSEC [Concomitant]
  4. GAS-X [Concomitant]

REACTIONS (3)
  - Feeling abnormal [Unknown]
  - Abdominal distension [Unknown]
  - Fatigue [Unknown]
